FAERS Safety Report 13573721 (Version 1)
Quarter: 2017Q2

REPORT INFORMATION
  Report Type: Spontaneous
  Country: US (occurrence: US)
  Receive Date: 20170523
  Receipt Date: 20170523
  Transmission Date: 20170830
  Serious: Yes (Other)
  Sender: FDA-Public Use
  Company Number: US-BAYER-2017-096151

PATIENT
  Sex: Female

DRUGS (1)
  1. MIRENA [Suspect]
     Active Substance: LEVONORGESTREL
     Dosage: 20 MCG/24HR, CONT
     Route: 015

REACTIONS (7)
  - Drug ineffective [None]
  - Pregnancy with contraceptive device [None]
  - Embedded device [None]
  - Headache [None]
  - Device difficult to use [None]
  - Adverse event [None]
  - Vaginal haemorrhage [None]
